FAERS Safety Report 9552060 (Version 2)
Quarter: 2014Q1

REPORT INFORMATION
  Report Type: Spontaneous
  Country: US (occurrence: None)
  Receive Date: 20130524
  Receipt Date: 20130724
  Transmission Date: 20141002
  Serious: No
  Sender: FDA-Public Use
  Company Number: PHEH2013US000724

PATIENT
  Age: 45 Year
  Sex: Female
  Weight: 102 kg

DRUGS (1)
  1. GILENYA (FINGOLIMOD) CAPSULE, 0.5 MG [Suspect]
     Indication: MULTIPLE SCLEROSIS
     Route: 048
     Dates: start: 201212

REACTIONS (7)
  - Abdominal pain upper [None]
  - Stress [None]
  - Pain [None]
  - Musculoskeletal disorder [None]
  - Hypoaesthesia [None]
  - Pain in extremity [None]
  - Paraesthesia [None]
